FAERS Safety Report 25519837 (Version 1)
Quarter: 2025Q3

REPORT INFORMATION
  Report Type: Report from Study
  Country: CN (occurrence: CN)
  Receive Date: 20250704
  Receipt Date: 20250704
  Transmission Date: 20251020
  Serious: Yes (Life-Threatening, Other)
  Sender: Vantive US Healthcare
  Company Number: CN-VANTIVE-2025VAN003010

PATIENT
  Age: 28 Year
  Sex: Male
  Weight: 70 kg

DRUGS (3)
  1. SODIUM CHLORIDE\SODIUM CITRATE, UNSPECIFIED FORM [Suspect]
     Active Substance: SODIUM CHLORIDE\SODIUM CITRATE, UNSPECIFIED FORM
     Indication: Acute kidney injury
     Route: 042
  2. MAGNESIUM CHLORIDE\POTASSIUM CHLORIDE\SODIUM BICARBONATE\SODIUM CHLORI [Suspect]
     Active Substance: MAGNESIUM CHLORIDE\POTASSIUM CHLORIDE\SODIUM BICARBONATE\SODIUM CHLORIDE\SODIUM PHOSPHATE, DIBASIC
     Indication: Acute kidney injury
     Route: 042
  3. UNSPECIFIED INGREDIENT [Suspect]
     Active Substance: UNSPECIFIED INGREDIENT
     Route: 065

REACTIONS (5)
  - Generalised tonic-clonic seizure [Recovered/Resolved]
  - Seizure [Unknown]
  - Foaming at mouth [Unknown]
  - Dyspnoea [Unknown]
  - Blood pressure abnormal [Unknown]

NARRATIVE: CASE EVENT DATE: 20250621
